FAERS Safety Report 4473705-4 (Version None)
Quarter: 2004Q4

REPORT INFORMATION
  Report Type: 
  Country: None (occurrence: None)
  Receive Date: 20041013
  Receipt Date: 20041001
  Transmission Date: 20050328
  Serious: Yes (Other)
  Sender: FDA-Public Use
  Company Number: KR-MERCK-0410KOR00002

PATIENT

DRUGS (3)
  1. ACECLOFENAC [Concomitant]
     Indication: SPONDYLOSIS
     Route: 048
     Dates: start: 20040501, end: 20040501
  2. ACECLOFENAC [Concomitant]
     Route: 048
     Dates: start: 20030101, end: 20040101
  3. VIOXX [Suspect]
     Indication: SPONDYLOSIS
     Route: 048
     Dates: start: 20040201, end: 20040501

REACTIONS (1)
  - CEREBROVASCULAR ACCIDENT [None]
